FAERS Safety Report 4954044-1 (Version None)
Quarter: 2006Q1

REPORT INFORMATION
  Report Type: 
  Country: None (occurrence: None)
  Receive Date: 20060321
  Receipt Date: 20060308
  Transmission Date: 20060701
  Serious: Yes (Other)
  Sender: FDA-Public Use
  Company Number: HQWYE226109MAR06

PATIENT
  Sex: Female

DRUGS (6)
  1. EFFEXOR XR [Suspect]
     Indication: DEPRESSION
     Dosage: 75 MG 1X PER 1 DAY ORAL
     Route: 048
     Dates: start: 20060210
  2. ATENOLOL [Concomitant]
  3. COZAAR [Concomitant]
  4. CLONAZEPAM [Concomitant]
  5. STILNOX (ZOLPIDEM) [Concomitant]
  6. ESTROGEN REPLACEMENT THERAPY (ESTROGEN REPLACEMENT THERAPY) [Concomitant]

REACTIONS (6)
  - ARRHYTHMIA [None]
  - BLOOD PRESSURE DIASTOLIC INCREASED [None]
  - CONDITION AGGRAVATED [None]
  - CONSTIPATION [None]
  - HEADACHE [None]
  - VISION BLURRED [None]
